FAERS Safety Report 16175710 (Version 1)
Quarter: 2019Q2

REPORT INFORMATION
  Report Type: Spontaneous
  Country: US (occurrence: US)
  Receive Date: 20190409
  Receipt Date: 20190409
  Transmission Date: 20190711
  Serious: No
  Sender: FDA-Public Use
  Company Number: US-BEH-2019101314

PATIENT
  Age: 10 Year
  Sex: Female

DRUGS (2)
  1. HIZENTRA [Suspect]
     Active Substance: HUMAN IMMUNOGLOBULIN G
     Indication: HYPOGAMMAGLOBULINAEMIA
     Dosage: 4 G, QW, AS DIRECTED
     Route: 058
     Dates: start: 20190206
  2. ACTEMRA [Concomitant]
     Active Substance: TOCILIZUMAB

REACTIONS (1)
  - Injection site swelling [Not Recovered/Not Resolved]
